FAERS Safety Report 5471247-0 (Version None)
Quarter: 2007Q3

REPORT INFORMATION
  Report Type: 
  Country: None (occurrence: None)
  Receive Date: 20070928
  Receipt Date: 20070919
  Transmission Date: 20080115
  Serious: Yes (Disabling, Other)
  Sender: FDA-Public Use
  Company Number: US-GILEAD-2007-0013448

PATIENT
  Sex: Female

DRUGS (6)
  1. LETAIRIS [Suspect]
     Route: 048
     Dates: start: 20070808, end: 20070812
  2. REVATIO [Concomitant]
     Route: 048
     Dates: start: 20050801
  3. REMODULIN [Concomitant]
     Dosage: 40 NG/KG/MIN CONTINUOUS
     Route: 042
     Dates: start: 20060101
  4. COUMADIN [Concomitant]
     Route: 048
     Dates: start: 20050801
  5. PLAQUENIL [Concomitant]
     Route: 048
  6. PREDNISONE [Concomitant]
     Route: 048

REACTIONS (1)
  - DRUG HYPERSENSITIVITY [None]
